FAERS Safety Report 16957161 (Version 2)
Quarter: 2019Q4

REPORT INFORMATION
  Report Type: Spontaneous
  Country: US (occurrence: US)
  Receive Date: 20191024
  Receipt Date: 20191030
  Transmission Date: 20200122
  Serious: Yes (Other)
  Sender: FDA-Public Use
  Company Number: US-PFIZER INC-20053

PATIENT
  Age: 68 Year
  Sex: Male

DRUGS (3)
  1. LITHIUM. [Interacting]
     Active Substance: LITHIUM
     Indication: BIPOLAR I DISORDER
     Dosage: 1500 MG, DAILY
     Route: 048
  2. DOXYCYCLINE HYCLATE. [Suspect]
     Active Substance: DOXYCYCLINE HYCLATE
     Indication: BRONCHITIS
     Dosage: 100 MG, 2X/DAY
     Route: 048
  3. LITHIUM. [Interacting]
     Active Substance: LITHIUM
     Dosage: 1200 MG, DAILY

REACTIONS (11)
  - Toxicity to various agents [Recovered/Resolved]
  - Abdominal discomfort [Recovered/Resolved]
  - Disorientation [Recovered/Resolved]
  - Fatigue [Recovered/Resolved]
  - Dysarthria [Recovered/Resolved]
  - Disturbance in attention [Recovered/Resolved]
  - Ataxia [Recovered/Resolved]
  - Memory impairment [Recovered/Resolved]
  - Apraxia [Recovered/Resolved]
  - Tremor [Recovered/Resolved]
  - Drug interaction [Recovered/Resolved]
